FAERS Safety Report 9782355 (Version 2)
Quarter: 2014Q1

REPORT INFORMATION
  Report Type: Spontaneous
  Country: IT (occurrence: IT)
  Receive Date: 20131226
  Receipt Date: 20140327
  Transmission Date: 20141002
  Serious: Yes (Hospitalization)
  Sender: FDA-Public Use
  Company Number: IT-BAYER-2013-154268

PATIENT
  Age: 86 Year
  Sex: Female

DRUGS (6)
  1. CARDIOASPIRIN [Suspect]
     Dosage: DAILY DOSE 100 MG
     Route: 048
     Dates: start: 20120125, end: 20130125
  2. LASIX [Concomitant]
     Dosage: DAILY DOSE 25 DF
  3. ZYLORIC [Concomitant]
     Dosage: 150 MG, UNK
  4. ADALAT [Concomitant]
     Dosage: 10 MG, UNK
  5. CELEBREX [Concomitant]
  6. CRESTOR [Concomitant]

REACTIONS (3)
  - Dyspnoea exertional [Recovering/Resolving]
  - Asthenia [Recovering/Resolving]
  - Iron deficiency anaemia [Recovering/Resolving]
